FAERS Safety Report 8967993 (Version 3)
Quarter: 2013Q1

REPORT INFORMATION
  Report Type: Spontaneous
  Country: GB (occurrence: GB)
  Receive Date: 20121218
  Receipt Date: 20130123
  Transmission Date: 20140127
  Serious: Yes (Other)
  Sender: FDA-Public Use
  Company Number: GB-PFIZER INC-2012310979

PATIENT
  Age: 25 Year
  Sex: Male

DRUGS (1)
  1. PREGABALIN [Suspect]
     Indication: NEURALGIA
     Dosage: 300 MG, 3X/DAY
     Route: 048
     Dates: start: 201201

REACTIONS (1)
  - Drug abuse [Not Recovered/Not Resolved]
